FAERS Safety Report 8515407-0 (Version None)
Quarter: 2012Q3

REPORT INFORMATION
  Report Type: 
  Country: None (occurrence: None)
  Receive Date: 20120717
  Receipt Date: 20120711
  Transmission Date: 20120928
  Serious: Yes (Hospitalization, Disabling)
  Sender: FDA-Public Use
  Company Number: BR-B.I. PHARMACEUTICALS,INC./RIDGEFIELD-2012-BR-00761BR

PATIENT
  Age: 82 Year
  Sex: Male

DRUGS (6)
  1. IVAPEN [Concomitant]
  2. CONCOR [Concomitant]
  3. METFORMIN HCL [Concomitant]
  4. DIOSOR [Concomitant]
  5. PRADAXA [Suspect]
     Route: 048
  6. CALCREM [Concomitant]

REACTIONS (1)
  - ISCHAEMIC STROKE [None]
